FAERS Safety Report 16349631 (Version 1)
Quarter: 2019Q2

REPORT INFORMATION
  Report Type: Spontaneous
  Country: IT (occurrence: IT)
  Receive Date: 20190523
  Receipt Date: 20190523
  Transmission Date: 20190711
  Serious: Yes (Life-Threatening)
  Sender: FDA-Public Use
  Company Number: IT-009507513-1905ITA008752

PATIENT
  Age: 56 Year

DRUGS (2)
  1. CEFTRIAXONE. [Concomitant]
     Active Substance: CEFTRIAXONE
     Route: 042
     Dates: start: 20190305, end: 20190416
  2. DAPTOMYCIN. [Suspect]
     Active Substance: DAPTOMYCIN
     Route: 042
     Dates: start: 20190305, end: 20190416

REACTIONS (3)
  - Hepatitis [Unknown]
  - Drug reaction with eosinophilia and systemic symptoms [Unknown]
  - Cytopenia [Unknown]

NARRATIVE: CASE EVENT DATE: 20190418
